FAERS Safety Report 18348888 (Version 1)
Quarter: 2020Q4

REPORT INFORMATION
  Report Type: Spontaneous
  Country: CA (occurrence: CA)
  Receive Date: 20201006
  Receipt Date: 20201006
  Transmission Date: 20210114
  Serious: Yes (Other)
  Sender: FDA-Public Use
  Company Number: CA-ACCORD-204129

PATIENT
  Age: 68 Year
  Sex: Male
  Weight: 84.37 kg

DRUGS (4)
  1. COVERSYL [Concomitant]
     Active Substance: PERINDOPRIL
  2. APO-BISOPROLOL [Concomitant]
     Active Substance: BISOPROLOL FUMARATE
  3. LEVETIRACETAM. [Suspect]
     Active Substance: LEVETIRACETAM
     Indication: EPILEPSY
     Dosage: FREQUENCY: 2 EVERY 1 DAYS
  4. APO-ATORVASTATIN [Concomitant]
     Active Substance: ATORVASTATIN

REACTIONS (2)
  - Product substitution issue [Unknown]
  - Seizure [Recovered/Resolved]
